FAERS Safety Report 16081387 (Version 1)
Quarter: 2019Q1

REPORT INFORMATION
  Report Type: Spontaneous
  Country: CA (occurrence: CA)
  Receive Date: 20190316
  Receipt Date: 20190316
  Transmission Date: 20190418
  Serious: Yes (Hospitalization, Other)
  Sender: FDA-Public Use
  Company Number: CA-AUROBINDO-AUR-APL-2019-012996

PATIENT

DRUGS (16)
  1. ENTACAPONE TABLETS [Suspect]
     Active Substance: ENTACAPONE
     Indication: PARKINSON^S DISEASE
     Dosage: 1000 MILLIGRAM, DAILY
     Route: 065
  2. PRAMIPEXOLE. [Suspect]
     Active Substance: PRAMIPEXOLE
     Indication: PARKINSON^S DISEASE
     Dosage: 4.5 MILLIGRAM, DAILY
     Route: 065
  3. PRAMIPEXOLE. [Suspect]
     Active Substance: PRAMIPEXOLE
     Dosage: 4.5 MILLIGRAM
     Route: 065
  4. QUETIAPINE. [Suspect]
     Active Substance: QUETIAPINE
     Indication: PSYCHOTIC DISORDER
     Dosage: 12.5 MILLIGRAM, DAILY
     Route: 065
  5. AMANTADINE. [Suspect]
     Active Substance: AMANTADINE HYDROCHLORIDE
     Indication: PSYCHOTIC DISORDER
     Dosage: 300 MILLIGRAM
     Route: 065
  6. PRAMIPEXOLE. [Suspect]
     Active Substance: PRAMIPEXOLE
     Dosage: 4.5 MILLIGRAM
     Route: 065
  7. CLOZAPINE. [Suspect]
     Active Substance: CLOZAPINE
     Indication: PSYCHOTIC DISORDER
     Dosage: UNK
     Route: 065
  8. LEVODOPA-CARBIDOPA [Suspect]
     Active Substance: CARBIDOPA\LEVODOPA
     Indication: PARKINSON^S DISEASE
     Dosage: UNK
     Route: 065
  9. NABILONE [Suspect]
     Active Substance: NABILONE
     Indication: PARKINSON^S DISEASE
     Dosage: 1 MILLIGRAM
     Route: 048
  10. ENTACAPONE TABLETS [Suspect]
     Active Substance: ENTACAPONE
     Dosage: 1000 MILLIGRAM
     Route: 065
  11. CARBIDOPA;LEVODOPA [Suspect]
     Active Substance: CARBIDOPA\LEVODOPA
     Indication: PARKINSON^S DISEASE
     Dosage: 1000250. MILLIGRAM, DAILY
     Route: 065
  12. FLUDROCORTISONE [Suspect]
     Active Substance: FLUDROCORTISONE
     Indication: PSYCHOTIC DISORDER
     Dosage: 0.1 MILLIGRAM, DAILY
     Route: 065
  13. NABILONE [Suspect]
     Active Substance: NABILONE
     Dosage: 1 MILLIGRAM
     Route: 048
  14. ENTACAPONE TABLETS [Suspect]
     Active Substance: ENTACAPONE
     Dosage: 1000 MILLIGRAM, DAILY
     Route: 065
  15. AMANTADINE. [Suspect]
     Active Substance: AMANTADINE HYDROCHLORIDE
     Indication: PARKINSON^S DISEASE
     Dosage: 300 MILLIGRAM, DAILY
     Route: 065
  16. CLOZAPINE. [Suspect]
     Active Substance: CLOZAPINE
     Indication: PARKINSON^S DISEASE
     Dosage: 37.5 MILLIGRAM, DAILY
     Route: 065

REACTIONS (6)
  - Therapeutic response shortened [Recovered/Resolved]
  - Psychotic disorder [Recovered/Resolved]
  - Drug effect incomplete [Recovered/Resolved]
  - Orthostatic hypotension [Recovered/Resolved]
  - Dystonia [Recovered/Resolved]
  - Parkinson^s disease psychosis [Recovered/Resolved]
